FAERS Safety Report 13693225 (Version 1)
Quarter: 2017Q2

REPORT INFORMATION
  Report Type: Spontaneous
  Country: US (occurrence: US)
  Receive Date: 20170626
  Receipt Date: 20170626
  Transmission Date: 20170830
  Serious: Yes (Life-Threatening, Hospitalization, Disabling, Other)
  Sender: FDA-Public Use
  Company Number: None

PATIENT
  Age: 50 Year
  Sex: Male
  Weight: 85.5 kg

DRUGS (6)
  1. MAGNESIUM [Concomitant]
     Active Substance: MAGNESIUM
  2. OMEGA THREES [Concomitant]
  3. MULTIVITAMIN [Concomitant]
     Active Substance: VITAMINS
  4. CLONZEPAM [Suspect]
     Active Substance: CLONAZEPAM
     Indication: GENERALISED ANXIETY DISORDER
     Dosage: ?          OTHER STRENGTH:MG;QUANTITY:30 CAPSULE(S);?AS NEEDED ORAL
     Route: 048
  5. VALIUM [Concomitant]
     Active Substance: DIAZEPAM
  6. MELATONIN [Concomitant]
     Active Substance: MELATONIN

REACTIONS (5)
  - Panic attack [None]
  - Paranoia [None]
  - Anxiety [None]
  - Obsessive-compulsive disorder [None]
  - Withdrawal syndrome [None]

NARRATIVE: CASE EVENT DATE: 19960601
